FAERS Safety Report 6369296-3 (Version None)
Quarter: 2009Q3

REPORT INFORMATION
  Report Type: 
  Country: None (occurrence: None)
  Receive Date: 20090916
  Receipt Date: 20090901
  Transmission Date: 20100115
  Serious: Yes (Hospitalization)
  Sender: FDA-Public Use
  Company Number: 2009AP003592

PATIENT
  Age: 68 Year
  Sex: Female

DRUGS (4)
  1. CARBAMAZEPINE [Suspect]
     Indication: TRIGEMINAL NEURALGIA
     Dosage: 800 MG; UNKNOWN; QD 600 MG; UNKNOWN; QD
  2. SPIRONOLACTONE [Suspect]
     Indication: HYPERTENSION
     Dosage: 100 MG; QD 200 MG; QD; 300; MG; QD 100 MG; QD
  3. ATENOLOL [Concomitant]
  4. ANTIHYPERTENSIVES (ANTIHYPERTENSIVES) [Concomitant]

REACTIONS (4)
  - BLOOD PRESSURE INADEQUATELY CONTROLLED [None]
  - BLOOD PRESSURE INCREASED [None]
  - DRUG INTERACTION [None]
  - TACHYCARDIA [None]
